FAERS Safety Report 8829233 (Version 2)
Quarter: 2013Q3

REPORT INFORMATION
  Report Type: Spontaneous
  Country: DE (occurrence: DE)
  Receive Date: 20121008
  Receipt Date: 20130701
  Transmission Date: 20140515
  Serious: Yes (Other)
  Sender: FDA-Public Use
  Company Number: PHHY2012DE085061

PATIENT
  Age: 80 Year
  Sex: Male

DRUGS (5)
  1. AZATHIOPRINE [Suspect]
     Indication: MYASTHENIA GRAVIS
     Dosage: 40 MG PER DAY
  2. PREDNISOLONE [Suspect]
     Indication: MYASTHENIA GRAVIS
     Dosage: 5 MG PER DAY
  3. EVEROLIMUS [Concomitant]
     Dosage: 1 MG, BID
  4. EVEROLIMUS [Concomitant]
     Dosage: 0.5 MG, BID
  5. EVEROLIMUS [Concomitant]
     Dosage: 0.5 MG AT MORNING, 0.25 MG AT NIGHT

REACTIONS (5)
  - Kaposi^s sarcoma [Recovering/Resolving]
  - Macule [Recovering/Resolving]
  - Skin lesion [Recovering/Resolving]
  - Skin mass [Recovering/Resolving]
  - Renal failure [Unknown]
